FAERS Safety Report 5406364-4 (Version None)
Quarter: 2007Q3

REPORT INFORMATION
  Report Type: 
  Country: None (occurrence: None)
  Receive Date: 20070806
  Receipt Date: 20070803
  Transmission Date: 20080115
  Serious: Yes (Other)
  Sender: FDA-Public Use
  Company Number: GB-BRISTOL-MYERS SQUIBB COMPANY-13867064

PATIENT
  Age: 29 Year
  Sex: Male

DRUGS (2)
  1. ABILIFY [Suspect]
     Indication: SCHIZOPHRENIA
     Dosage: DRUG DOSING- STARTED ABOUT 2 MONTHS AGO; 5MG FOR 1 WEEK, 10MG FOR 1 WEEK, TITRATED UPTO 20MG.
     Dates: start: 20070601
  2. DIAZEPAM [Concomitant]
     Indication: SLEEP DISORDER

REACTIONS (7)
  - ABNORMAL BEHAVIOUR [None]
  - AGITATION [None]
  - ANOREXIA [None]
  - COORDINATION ABNORMAL [None]
  - INSOMNIA [None]
  - MUSCULOSKELETAL STIFFNESS [None]
  - TREMOR [None]
